FAERS Safety Report 8649613 (Version 2)
Quarter: 2012Q4

REPORT INFORMATION
  Report Type: 
  Country: US (occurrence: US)
  Receive Date: 20120705
  Receipt Date: 20120830
  Transmission Date: 20130627
  Serious: Yes (Other)
  Sender: FDA-Public Use
  Company Number: US-BRISTOL-MYERS SQUIBB COMPANY-16712952

PATIENT
  Age: 51 Year
  Sex: Male

DRUGS (7)
  1. DIDANOSINE [Suspect]
     Dosage: Discontinued 4 months ago
400mg 28Jul1997-05Jan1998,250mg/day,1/6/1998-10/16/07
     Route: 048
     Dates: start: 19970728, end: 20071016
  2. IBUPROFEN [Suspect]
     Dates: start: 199711, end: 2012
  3. EFAVIRENZ [Suspect]
     Indication: ANTIRETROVIRAL THERAPY
  4. STAVUDINE [Suspect]
     Indication: ANTIRETROVIRAL THERAPY
  5. TENOFOVIR [Suspect]
     Indication: ANTIRETROVIRAL THERAPY
  6. LAMIVUDINE [Suspect]
     Indication: ANTIRETROVIRAL THERAPY
  7. ETANERCEPT [Suspect]
     Indication: PSORIASIS
     Dates: start: 20090619, end: 20120709

REACTIONS (2)
  - Hepatic cirrhosis [Unknown]
  - Hepatic failure [Not Recovered/Not Resolved]
